FAERS Safety Report 10185848 (Version 2)
Quarter: 2014Q2

REPORT INFORMATION
  Report Type: Report from Study
  Country: BR (occurrence: BR)
  Receive Date: 20140521
  Receipt Date: 20140602
  Transmission Date: 20141212
  Serious: Yes (Hospitalization)
  Sender: FDA-Public Use
  Company Number: BR-AMGEN-BRACT2014036267

PATIENT
  Age: 82 Year
  Sex: Female

DRUGS (7)
  1. DENOSUMAB [Suspect]
     Indication: OSTEOPOROSIS POSTMENOPAUSAL
     Dosage: 60 MG, Q6MO
     Route: 058
     Dates: start: 20080515
  2. DAFLON                             /00426001/ [Concomitant]
     Dosage: 500 MG, Q12H
     Route: 048
     Dates: start: 20140912
  3. LOSARTAN [Concomitant]
     Dosage: 50 MG, QD
     Route: 048
     Dates: start: 20140912
  4. DILACORON [Concomitant]
     Dosage: 80 MG, QD
     Route: 048
     Dates: start: 1975
  5. CINARIZIN [Concomitant]
     Dosage: 25 MG, AS NECESSARY
     Route: 048
     Dates: start: 2002
  6. VIVACOR                            /00802602/ [Concomitant]
     Dosage: 5 MG, QD
     Route: 048
     Dates: start: 200602
  7. CALCIUM PLUS VITAMIN D [Concomitant]
     Dosage: 500 MG/200 IU, BID
     Route: 048
     Dates: start: 20050609

REACTIONS (2)
  - Thrombophlebitis superficial [Recovered/Resolved]
  - Cellulitis [Recovered/Resolved]
